FAERS Safety Report 9105397 (Version 3)
Quarter: 2013Q2

REPORT INFORMATION
  Report Type: Report from Study
  Country: US (occurrence: US)
  Receive Date: 20130220
  Receipt Date: 20130402
  Transmission Date: 20140414
  Serious: Yes (Hospitalization, Other)
  Sender: FDA-Public Use
  Company Number: US-BRISTOL-MYERS SQUIBB COMPANY-17375007

PATIENT
  Age: 48 Year
  Sex: Male
  Weight: 69 kg

DRUGS (2)
  1. IPILIMUMAB [Suspect]
     Indication: MALIGNANT MELANOMA
     Dosage: LAST ADMINISTERD DATE ON 8FEB13
     Route: 042
     Dates: start: 20110715
  2. LEUKINE [Suspect]
     Indication: MALIGNANT MELANOMA
     Dosage: LAST DOSE ON 16AUG12
     Route: 058
     Dates: start: 20110715

REACTIONS (3)
  - Hypophysitis [Not Recovered/Not Resolved]
  - Adrenal insufficiency [Not Recovered/Not Resolved]
  - Hyponatraemia [Recovering/Resolving]
